FAERS Safety Report 18887653 (Version 3)
Quarter: 2021Q2

REPORT INFORMATION
  Report Type: Report from Study
  Country: JP (occurrence: JP)
  Receive Date: 20210212
  Receipt Date: 20210408
  Transmission Date: 20210717
  Serious: Yes (Death, Other)
  Sender: FDA-Public Use
  Company Number: JP-JNJFOC-20210138365

PATIENT
  Age: 70 Year
  Sex: Male

DRUGS (20)
  1. BAYASPIRIN [Concomitant]
     Active Substance: ASPIRIN
     Route: 048
     Dates: end: 20201211
  2. SAMSCA [Concomitant]
     Active Substance: TOLVAPTAN
     Route: 048
     Dates: end: 20201211
  3. VENTAVIS [Suspect]
     Active Substance: ILOPROST
     Indication: SCLERODERMA
     Route: 065
     Dates: start: 20190618, end: 202011
  4. ALLOPURINOL. [Concomitant]
     Active Substance: ALLOPURINOL
     Route: 048
     Dates: end: 20201211
  5. HOKUNALIN [TULOBUTEROL HYDROCHLORIDE] [Concomitant]
     Dates: end: 20201211
  6. ADCIRCA [Concomitant]
     Active Substance: TADALAFIL
     Route: 048
     Dates: end: 20201211
  7. SPIRONOLACTONE. [Concomitant]
     Active Substance: SPIRONOLACTONE
     Route: 048
     Dates: end: 20201211
  8. AMBROXOL HYDROCHLORIDE [Concomitant]
     Active Substance: AMBROXOL HYDROCHLORIDE
     Route: 048
     Dates: end: 20201211
  9. ANPLAG [SARPOGRELATE HYDROCHLORIDE] [Concomitant]
     Active Substance: SARPOGRELATE HYDROCHLORIDE
     Route: 048
     Dates: end: 20201211
  10. DIART [Concomitant]
     Active Substance: AZOSEMIDE
     Route: 048
     Dates: end: 20201211
  11. MAGNESIUM ADIPATE;NICOTINIC ACID [Concomitant]
     Route: 048
  12. ESOMEPRAZOLE. [Concomitant]
     Active Substance: ESOMEPRAZOLE MAGNESIUM
     Route: 048
     Dates: end: 20201211
  13. PREDNISOLONE. [Concomitant]
     Active Substance: PREDNISOLONE
     Route: 048
  14. KALGUT [Concomitant]
     Active Substance: DENOPAMINE
     Route: 048
     Dates: end: 20201211
  15. OPSUMIT [Concomitant]
     Active Substance: MACITENTAN
     Route: 048
     Dates: end: 20201211
  16. OXYGEN. [Concomitant]
     Active Substance: OXYGEN
     Dates: end: 20201211
  17. FUROSEMIDE. [Concomitant]
     Active Substance: FUROSEMIDE
     Route: 048
     Dates: end: 20201211
  18. FORXIGA [Concomitant]
     Active Substance: DAPAGLIFLOZIN
     Route: 048
     Dates: start: 20200303, end: 20201211
  19. DOBUTAMINE [Concomitant]
     Active Substance: DOBUTAMINE HYDROCHLORIDE
     Dates: start: 20201105, end: 20201112
  20. VENTAVIS [Suspect]
     Active Substance: ILOPROST
     Indication: PULMONARY ARTERIAL HYPERTENSION
     Route: 065
     Dates: start: 20190618, end: 20190618

REACTIONS (2)
  - Pulmonary hypertension [Recovering/Resolving]
  - Cardio-respiratory arrest [Fatal]

NARRATIVE: CASE EVENT DATE: 20201104
